FAERS Safety Report 11876717 (Version 1)
Quarter: 2015Q4

REPORT INFORMATION
  Report Type: Spontaneous
  Country: CH (occurrence: CH)
  Receive Date: 20151229
  Receipt Date: 20151229
  Transmission Date: 20160305
  Serious: Yes (Death, Other)
  Sender: FDA-Public Use
  Company Number: CH-TEVA-621491ISR

PATIENT
  Age: 3 Day
  Sex: Female

DRUGS (10)
  1. AMPHOTERICIN B. [Suspect]
     Active Substance: AMPHOTERICIN B
     Indication: ANTIFUNGAL TREATMENT
     Route: 042
  2. CIDOFOVIR. [Concomitant]
     Active Substance: CIDOFOVIR
     Indication: ADENOVIRUS INFECTION
     Dosage: 5 MG/KG
     Route: 065
  3. FLUDARABINE [Concomitant]
     Active Substance: FLUDARABINE PHOSPHATE
     Indication: CHEMOTHERAPY
  4. FLUCONAZOLE. [Suspect]
     Active Substance: FLUCONAZOLE
     Indication: ANTIFUNGAL TREATMENT
     Dosage: 12 MG/KG DAILY;
     Route: 042
  5. AMPHOTERICIN B. [Suspect]
     Active Substance: AMPHOTERICIN B
     Indication: ANTIFUNGAL PROPHYLAXIS
     Dosage: 3 MG/KG DAILY;
     Route: 042
  6. CASPOFUNGIN [Suspect]
     Active Substance: CASPOFUNGIN
     Indication: ANTIFUNGAL TREATMENT
     Dosage: 100 MG/M2/DAY
     Route: 065
  7. VORICONAZOLE. [Suspect]
     Active Substance: VORICONAZOLE
     Indication: ANTIFUNGAL TREATMENT
     Dosage: 18 MG/KG DAILY;
     Route: 065
  8. CYTARABINE. [Concomitant]
     Active Substance: CYTARABINE
     Indication: ACUTE MYELOID LEUKAEMIA
     Route: 065
  9. CLOFARABINE [Concomitant]
     Active Substance: CLOFARABINE
     Indication: ACUTE MYELOID LEUKAEMIA
     Route: 065
  10. BUSULFAN [Concomitant]
     Active Substance: BUSULFAN
     Indication: CHEMOTHERAPY
     Route: 065

REACTIONS (2)
  - Disease progression [Fatal]
  - Multiple-drug resistance [Unknown]
